FAERS Safety Report 14693184 (Version 2)
Quarter: 2018Q2

REPORT INFORMATION
  Report Type: Spontaneous
  Country: FR (occurrence: FR)
  Receive Date: 20180329
  Receipt Date: 20180412
  Transmission Date: 20180711
  Serious: Yes (Hospitalization, Other)
  Sender: FDA-Public Use
  Company Number: FR-SUN PHARMACEUTICAL INDUSTRIES LTD-2018RR-168615

PATIENT
  Age: 57 Year
  Sex: Male
  Weight: 75 kg

DRUGS (9)
  1. OXALIPLATIN. [Suspect]
     Active Substance: OXALIPLATIN
     Indication: NEUROENDOCRINE TUMOUR
     Dosage: UNK, CYCLIC, EVERY 14 DAYS (SIX CYCLES) ()
     Dates: start: 20170201, end: 20170723
  2. FLUOROURACIL. [Suspect]
     Active Substance: FLUOROURACIL
     Indication: NEUROENDOCRINE TUMOUR
     Dosage: 1 CYCLE, EVERY 14 DAYS () ; CYCLICAL
     Route: 042
     Dates: start: 20170724, end: 20171006
  3. SUNITINIB MALATE. [Suspect]
     Active Substance: SUNITINIB MALATE
     Indication: PANCREATIC NEUROENDOCRINE TUMOUR METASTATIC
     Dosage: 37.5 MG, DAILY
     Route: 065
     Dates: start: 20151207, end: 20170116
  4. INSULIN [Concomitant]
     Active Substance: INSULIN NOS
     Indication: TYPE 2 DIABETES MELLITUS
     Dosage: UNK ()
     Route: 065
  5. XELODA [Concomitant]
     Active Substance: CAPECITABINE
     Indication: NEOPLASM PROGRESSION
     Dosage: UNK ()
     Route: 048
     Dates: start: 20171026
  6. FOLINIC ACID [Suspect]
     Active Substance: LEUCOVORIN
     Indication: PANCREATIC NEUROENDOCRINE TUMOUR METASTATIC
     Dosage: UNK, CYCLIC, EVERY 14 DAYS (SIX CYCLES) () ; CYCLICAL
     Route: 042
     Dates: start: 20170130, end: 20170723
  7. FLUOROURACIL. [Suspect]
     Active Substance: FLUOROURACIL
     Indication: PANCREATIC NEUROENDOCRINE TUMOUR METASTATIC
     Dosage: UNK, CYCLIC, EVERY 14 DAYS (SIX CYCLES) () ; CYCLICAL
     Route: 042
     Dates: start: 20170130, end: 20170723
  8. FOLINIC ACID [Suspect]
     Active Substance: LEUCOVORIN
     Indication: NEUROENDOCRINE TUMOUR
     Dosage: 1 CYCLE VERY 14 DAYS () ; CYCLICAL
     Route: 042
     Dates: start: 20170724, end: 20171006
  9. OXALIPLATIN. [Suspect]
     Active Substance: OXALIPLATIN
     Indication: PANCREATIC NEUROENDOCRINE TUMOUR METASTATIC
     Dosage: UNK, CYCLIC, EVERY 14 DAYS (SIX CYCLES) () ; CYCLICAL
     Route: 042
     Dates: start: 20170130, end: 20170723

REACTIONS (15)
  - Small intestinal obstruction [Recovered/Resolved]
  - Hypokalaemia [Not Recovered/Not Resolved]
  - General physical health deterioration [Recovered/Resolved]
  - Hypokalaemia [Recovered/Resolved]
  - Hypercalcaemia [Not Recovered/Not Resolved]
  - Abdominal pain [Recovered/Resolved]
  - Blood calcium abnormal [Not Recovered/Not Resolved]
  - Hypercalcaemia [Recovering/Resolving]
  - Endocarditis [Recovered/Resolved]
  - Vomiting [Recovered/Resolved]
  - Diarrhoea [Recovered/Resolved]
  - Paraesthesia [Recovered/Resolved]
  - Sepsis [Recovered/Resolved]
  - Intestinal obstruction [Unknown]
  - Hypoglycaemia [Recovered/Resolved]

NARRATIVE: CASE EVENT DATE: 2016
